FAERS Safety Report 13906828 (Version 1)
Quarter: 2017Q3

REPORT INFORMATION
  Report Type: Spontaneous
  Country: US (occurrence: US)
  Receive Date: 20170825
  Receipt Date: 20170825
  Transmission Date: 20171127
  Serious: Yes (Death)
  Sender: FDA-Public Use
  Company Number: US-PFIZER INC-2017368855

PATIENT
  Sex: Female

DRUGS (17)
  1. ALBUTEROL. [Concomitant]
     Active Substance: ALBUTEROL
     Dosage: 1 DF, AS NEEDED
  2. COLECALCIFEROL [Concomitant]
     Active Substance: CHOLECALCIFEROL
     Dosage: 1000 IU, 1X/DAY
     Route: 048
  3. XALKORI [Suspect]
     Active Substance: CRIZOTINIB
     Indication: LUNG NEOPLASM MALIGNANT
     Dosage: 250 MG, 2X/DAY
     Route: 048
  4. PROTONIX /00661201/ [Concomitant]
     Active Substance: OMEPRAZOLE
     Dosage: 40 MG, 1X/DAY
     Route: 048
  5. AMLODIPINE [Concomitant]
     Active Substance: AMLODIPINE BESYLATE
     Dosage: 5 MG, 1X/DAY
     Route: 048
  6. ROSEHIP [Concomitant]
     Active Substance: ROSEHIP
     Dosage: 20 MG, 1X/DAY
     Route: 048
  7. CEFTIN [Concomitant]
     Active Substance: CEFUROXIME AXETIL
     Dosage: 500 MG, 2X/DAY
     Route: 048
  8. SYNTHROID [Concomitant]
     Active Substance: LEVOTHYROXINE SODIUM
     Dosage: 75 UG, 1X/DAY
     Route: 048
  9. COZAAR [Concomitant]
     Active Substance: LOSARTAN POTASSIUM
     Dosage: 50 MG, 2X/DAY
  10. CIMZIA [Concomitant]
     Active Substance: CERTOLIZUMAB PEGOL
     Dosage: TWICE A MONTH
     Route: 058
  11. FOLINIC ACID [Concomitant]
     Active Substance: LEUCOVORIN
     Dosage: 1 DF, DAILY
     Route: 048
  12. VITAMIN C [Concomitant]
     Active Substance: ASCORBIC ACID
     Dosage: 500 MG, 1X/DAY
     Route: 048
  13. BREO ELLIPTA [Concomitant]
     Active Substance: FLUTICASONE FUROATE\VILANTEROL TRIFENATATE
     Dosage: 1 DF, DAILY
  14. CHOLEST-OFF [Concomitant]
     Active Substance: DIETARY SUPPLEMENT
     Dosage: 450 MG, 2X/DAY
     Route: 048
  15. POTASSIUM CHLORIDE. [Concomitant]
     Active Substance: POTASSIUM CHLORIDE
     Dosage: 10 MEQ, 2X/DAY
     Route: 048
  16. COMPAZINE /00013302/ [Concomitant]
     Active Substance: PROCHLORPERAZINE EDISYLATE
     Indication: NAUSEA
     Dosage: 10 MG, AS NEEDED
  17. ZOCOR [Concomitant]
     Active Substance: SIMVASTATIN
     Dosage: 10 MG, 1X/DAY

REACTIONS (1)
  - Death [Fatal]
